FAERS Safety Report 13323123 (Version 2)
Quarter: 2017Q2

REPORT INFORMATION
  Report Type: Spontaneous
  Country: KZ (occurrence: KZ)
  Receive Date: 20170310
  Receipt Date: 20170407
  Transmission Date: 20170830
  Serious: Yes (Other)
  Sender: FDA-Public Use
  Company Number: KZ-BAYER-2017-040404

PATIENT
  Age: 67 Year
  Sex: Male
  Weight: 69 kg

DRUGS (2)
  1. STIVARGA [Suspect]
     Active Substance: REGORAFENIB
     Indication: COLORECTAL CANCER METASTATIC
     Dosage: 160 MG, UNK
     Route: 048
     Dates: start: 20170206, end: 20170220
  2. STIVARGA [Suspect]
     Active Substance: REGORAFENIB
     Indication: COLORECTAL CANCER METASTATIC
     Dosage: 1 DF, BID
     Dates: start: 20170323

REACTIONS (9)
  - Urinary tract pain [None]
  - Dysuria [Recovered/Resolved]
  - Urinary tract pain [Recovered/Resolved]
  - Proctalgia [Recovered/Resolved]
  - Pruritus [None]
  - Decreased appetite [Recovering/Resolving]
  - Anorectal discomfort [Recovered/Resolved]
  - Asthenia [Recovering/Resolving]
  - Dyschezia [Recovered/Resolved]

NARRATIVE: CASE EVENT DATE: 201702
